FAERS Safety Report 7905749-1 (Version None)
Quarter: 2011Q4

REPORT INFORMATION
  Report Type: 
  Country: None (occurrence: None)
  Receive Date: 20111108
  Receipt Date: 20111025
  Transmission Date: 20120403
  Serious: Yes (Other)
  Sender: FDA-Public Use
  Company Number: 1000025144

PATIENT
  Age: 70 Year
  Sex: Male

DRUGS (6)
  1. OXYGEN (OXYGEN) (OXYGEN) [Concomitant]
  2. ROFLUMILAST (ROFLUMILAST) (500 MICROGRAM, TABLETS) [Suspect]
     Indication: CHRONIC OBSTRUCTIVE PULMONARY DISEASE
     Dosage: 500 MICROGRAM (500 MCG,1 IN 1 D),ORAL
     Route: 048
     Dates: start: 20110622, end: 20110729
  3. ROFLUMILAST (ROFLUMILAST) (500 MICROGRAM, TABLETS) [Suspect]
     Indication: BRONCHITIS
     Dosage: 500 MICROGRAM (500 MCG,1 IN 1 D),ORAL
     Route: 048
     Dates: start: 20110622, end: 20110729
  4. ROFLUMILAST (ROFLUMILAST) (500 MICROGRAM, TABLETS) [Suspect]
     Indication: CHRONIC OBSTRUCTIVE PULMONARY DISEASE
     Dosage: 500 MICROGRAM (500 MCG,1 IN 1 D),ORAL
     Route: 048
     Dates: start: 20111003
  5. ROFLUMILAST (ROFLUMILAST) (500 MICROGRAM, TABLETS) [Suspect]
     Indication: BRONCHITIS
     Dosage: 500 MICROGRAM (500 MCG,1 IN 1 D),ORAL
     Route: 048
     Dates: start: 20111003
  6. DISTRANEURIN (CLOMETHIAZOLE EDISILATE) (CLOMETHIAZOLE EDISILATE) [Concomitant]

REACTIONS (6)
  - IRRITABILITY [None]
  - INSOMNIA [None]
  - HALLUCINATION, VISUAL [None]
  - NERVOUSNESS [None]
  - AGITATION [None]
  - PCO2 INCREASED [None]
